FAERS Safety Report 7082789-9 (Version None)
Quarter: 2010Q4

REPORT INFORMATION
  Report Type: 
  Country: None (occurrence: None)
  Receive Date: 20101104
  Receipt Date: 20101025
  Transmission Date: 20110411
  Serious: Yes (Other)
  Sender: FDA-Public Use
  Company Number: CO-SANOFI-AVENTIS-2010SA065209

PATIENT
  Age: 60 Year
  Sex: Female

DRUGS (7)
  1. ARAVA [Suspect]
     Route: 048
     Dates: start: 20101022, end: 20101023
  2. CLONAZEPAM [Interacting]
     Indication: EPILEPSY
     Route: 048
     Dates: start: 20000101
  3. OXCARBAZEPINE [Interacting]
     Indication: EPILEPSY
     Route: 048
     Dates: start: 20070101
  4. LAMOTRIGINE [Interacting]
     Indication: EPILEPSY
     Route: 048
     Dates: start: 20080101
  5. RANITIDINE [Concomitant]
     Route: 048
     Dates: start: 20000101
  6. GLUCOSAMINE [Concomitant]
     Route: 048
  7. PARACETAMOL [Concomitant]
     Route: 048
     Dates: start: 20000101

REACTIONS (5)
  - ANXIETY [None]
  - CONFUSIONAL STATE [None]
  - CONVULSION [None]
  - DRUG INTERACTION [None]
  - RESTLESSNESS [None]
